FAERS Safety Report 9289370 (Version 1)
Quarter: 2013Q2

REPORT INFORMATION
  Report Type: Spontaneous
  Country: US (occurrence: US)
  Receive Date: 20130514
  Receipt Date: 20130514
  Transmission Date: 20140414
  Serious: Yes (Other)
  Sender: FDA-Public Use
  Company Number: PHHY2013US046736

PATIENT
  Age: 18 Year
  Sex: Male

DRUGS (4)
  1. CICLOSPORIN [Suspect]
     Indication: IMMUNOSUPPRESSION
  2. TACROLIMUS [Suspect]
     Indication: IMMUNOSUPPRESSION
  3. OKT 3 [Suspect]
     Indication: IMMUNOSUPPRESSION
  4. STEROIDS NOS [Concomitant]

REACTIONS (9)
  - Toxicity to various agents [Unknown]
  - T-cell type acute leukaemia [Recovered/Resolved]
  - Liver transplant rejection [Recovered/Resolved]
  - Posterior reversible encephalopathy syndrome [Unknown]
  - Night sweats [Unknown]
  - Dyspnoea [Unknown]
  - Mediastinal mass [Recovering/Resolving]
  - Lymphadenopathy [Unknown]
  - Retroperitoneal lymphadenopathy [Unknown]
